FAERS Safety Report 8563772-0 (Version None)
Quarter: 2012Q3

REPORT INFORMATION
  Report Type: 
  Country: None (occurrence: None)
  Receive Date: 20120803
  Receipt Date: 20120725
  Transmission Date: 20120928
  Serious: Yes (Other)
  Sender: FDA-Public Use
  Company Number: IT-BRISTOL-MYERS SQUIBB COMPANY-16770091

PATIENT
  Age: 52 Year
  Sex: Female

DRUGS (4)
  1. FLUOROURACIL [Concomitant]
     Indication: COLON CANCER
     Route: 042
     Dates: start: 20110928, end: 20120313
  2. ERBITUX [Suspect]
     Indication: COLON CANCER
     Dosage: 1 DF:366 UNITS NOS,DOSE:200MG/M2 CYCLICAL.
     Route: 042
     Dates: start: 20110915, end: 20120202
  3. ELOXATIN [Suspect]
     Indication: COLON CANCER
     Route: 042
     Dates: start: 20110928, end: 20120312
  4. LEUCOVORIN CALCIUM [Concomitant]
     Indication: COLON CANCER
     Route: 042
     Dates: start: 20110928, end: 20120313

REACTIONS (3)
  - DERMATITIS ACNEIFORM [None]
  - POLYNEUROPATHY [None]
  - PRURITUS [None]
